FAERS Safety Report 16359174 (Version 1)
Quarter: 2019Q2

REPORT INFORMATION
  Report Type: Spontaneous
  Country: US (occurrence: US)
  Receive Date: 20190527
  Receipt Date: 20190527
  Transmission Date: 20190711
  Serious: No
  Sender: FDA-Public Use
  Company Number: US-SA-2019SA140055

PATIENT
  Age: 56 Year
  Sex: Female

DRUGS (18)
  1. SYMBICORT [Concomitant]
     Active Substance: BUDESONIDE\FORMOTEROL FUMARATE DIHYDRATE
     Dosage: UNK
  2. ARIPIPRAZOLE. [Concomitant]
     Active Substance: ARIPIPRAZOLE
  3. OXYBUTYNIN CHLORIDE. [Concomitant]
     Active Substance: OXYBUTYNIN CHLORIDE
  4. AZITHROMYCIN ANHYDROUS. [Concomitant]
     Active Substance: AZITHROMYCIN ANHYDROUS
  5. ELETRIPTAN HBR [Concomitant]
     Active Substance: ELETRIPTAN HYDROBROMIDE
  6. HYDROCODONE/ACETAMINOPHEN [Concomitant]
     Active Substance: ACETAMINOPHEN\HYDROCODONE
  7. IPRATROPIUM BROMIDE. [Concomitant]
     Active Substance: IPRATROPIUM BROMIDE
  8. SPIRIVA RESPIMAT [Concomitant]
     Active Substance: TIOTROPIUM BROMIDE
  9. RASAGILINE MESYLATE. [Concomitant]
     Active Substance: RASAGILINE MESYLATE
  10. CLONAZEPAM. [Concomitant]
     Active Substance: CLONAZEPAM
  11. DULOXETINE. [Concomitant]
     Active Substance: DULOXETINE
  12. ONDANSETRON [ONDANSETRON HYDROCHLORIDE] [Concomitant]
  13. DUPIXENT [Suspect]
     Active Substance: DUPILUMAB
     Indication: ASTHMA
     Dosage: 300 MG, QOW
     Route: 058
     Dates: start: 20190424
  14. NEUPRO [Concomitant]
     Active Substance: ROTIGOTINE
  15. VENTOLIN HFA [Concomitant]
     Active Substance: ALBUTEROL SULFATE
  16. BACLOFEN. [Concomitant]
     Active Substance: BACLOFEN
  17. VITAMIN D2 [Concomitant]
     Active Substance: ERGOCALCIFEROL
  18. BOTOX [Concomitant]
     Active Substance: ONABOTULINUMTOXINA
     Dosage: UNK

REACTIONS (1)
  - Sinusitis [Not Recovered/Not Resolved]
